FAERS Safety Report 18819650 (Version 1)
Quarter: 2021Q1

REPORT INFORMATION
  Report Type: Spontaneous
  Country: US (occurrence: US)
  Receive Date: 20210202
  Receipt Date: 20210202
  Transmission Date: 20210419
  Serious: No
  Sender: FDA-Public Use
  Company Number: US-JNJFOC-20210129511

PATIENT
  Age: 50 Year
  Sex: Male

DRUGS (6)
  1. MOTRIN [Suspect]
     Active Substance: IBUPROFEN
     Indication: FATIGUE
  2. MOTRIN [Suspect]
     Active Substance: IBUPROFEN
     Indication: PARAESTHESIA
  3. TYLENOL [Suspect]
     Active Substance: ACETAMINOPHEN
     Indication: CHILLS
     Route: 065
     Dates: start: 20201227
  4. TYLENOL [Suspect]
     Active Substance: ACETAMINOPHEN
     Indication: FATIGUE
  5. TYLENOL [Suspect]
     Active Substance: ACETAMINOPHEN
     Indication: PARAESTHESIA
  6. MOTRIN [Suspect]
     Active Substance: IBUPROFEN
     Indication: CHILLS
     Route: 065
     Dates: start: 20201227

REACTIONS (2)
  - Therapeutic response unexpected [Unknown]
  - Product use in unapproved indication [Unknown]

NARRATIVE: CASE EVENT DATE: 20201227
